FAERS Safety Report 4381115-3 (Version None)
Quarter: 2004Q2

REPORT INFORMATION
  Report Type: 
  Country: None (occurrence: None)
  Receive Date: 20040601
  Receipt Date: 20040420
  Transmission Date: 20050107
  Serious: No
  Sender: FDA-Public Use
  Company Number: FABR-10546

PATIENT
  Age: 33 Year
  Sex: Male
  Weight: 72 kg

DRUGS (2)
  1. FABRAZYME [Suspect]
     Indication: FABRY'S DISEASE
     Dosage: 70 MG Q2WKS IV
     Route: 042
     Dates: start: 20031021
  2. IBUPROFEN [Concomitant]

REACTIONS (2)
  - CHILLS [None]
  - RHINITIS [None]
